FAERS Safety Report 9771812 (Version 1)
Quarter: 2013Q3

REPORT INFORMATION
  Report Type: Spontaneous
  Country: US (occurrence: None)
  Receive Date: 20130920
  Receipt Date: 20130920
  Transmission Date: 20140515
  Serious: Yes (Other)
  Sender: FDA-Public Use
  Company Number: ADR-2013-01553

PATIENT
  Sex: Female

DRUGS (1)
  1. LIORESAL [Suspect]
     Indication: MUSCLE SPASTICITY

REACTIONS (9)
  - Muscle spasms [None]
  - Heart rate increased [None]
  - Pain [None]
  - Unevaluable event [None]
  - Hypertonia [None]
  - Pyrexia [None]
  - Hyperhidrosis [None]
  - Hypertension [None]
  - Urinary retention [None]
